FAERS Safety Report 7741303-2 (Version None)
Quarter: 2011Q3

REPORT INFORMATION
  Report Type: 
  Country: None (occurrence: None)
  Receive Date: 20110909
  Receipt Date: 20110830
  Transmission Date: 20111222
  Serious: Yes (Hospitalization, Disabling, Other)
  Sender: FDA-Public Use
  Company Number: US-ELI_LILLY_AND_COMPANY-US201108009055

PATIENT
  Sex: Female

DRUGS (22)
  1. HUMULIN N [Suspect]
     Indication: DIABETES MELLITUS
     Dosage: 32 U, EACH MORNING
     Dates: start: 20101101
  2. BUMETANIDE [Concomitant]
     Dosage: UNK
  3. FERROUS SULFATE TAB [Concomitant]
     Dosage: UNK
  4. FOLIC ACID [Concomitant]
     Dosage: UNK
  5. HUMULIN R [Suspect]
     Indication: DIABETES MELLITUS
     Dosage: UNK, PRN
  6. SYNTHROID [Concomitant]
     Dosage: UNK
  7. MULTI-VITAMIN [Concomitant]
     Dosage: UNK
  8. HUMULIN N [Suspect]
     Dosage: 25 U, UNKNOWN
     Dates: start: 20101101
  9. MORPHINE [Concomitant]
     Indication: MIGRAINE
     Dosage: UNK, BID
     Route: 048
  10. NOVOLIN 70/30 [Concomitant]
     Dosage: 25 U, EACH MORNING
  11. LIPITOR [Concomitant]
  12. INSULIN [Concomitant]
  13. HUMULIN N [Suspect]
     Dosage: 32 U, EACH EVENING
     Dates: start: 20101101
  14. VITAMIN B-12 [Concomitant]
     Dosage: UNK
  15. ZOCOR [Concomitant]
     Dosage: UNK
  16. MORPHINE [Concomitant]
     Dosage: UNK, PRN
     Route: 042
  17. LANTUS [Concomitant]
  18. NOVOLIN 70/30 [Concomitant]
     Dosage: 10 U, EACH EVENING
  19. ASCORBIC ACID [Concomitant]
     Dosage: UNK
  20. NOVOLOG [Concomitant]
  21. METOPROLOL TARTRATE [Concomitant]
     Dosage: UNK
  22. POTASSIUM [Concomitant]
     Dosage: UNK

REACTIONS (52)
  - AUTOIMMUNE THYROIDITIS [None]
  - SKIN DISORDER [None]
  - BLOOD GLUCOSE DECREASED [None]
  - TREMOR [None]
  - URTICARIA [None]
  - CARDIAC FAILURE [None]
  - HEART INJURY [None]
  - THYROID DISORDER [None]
  - GOITRE [None]
  - MULTIPLE ALLERGIES [None]
  - HEADACHE [None]
  - BLOOD GLUCOSE INCREASED [None]
  - CEREBRAL DISORDER [None]
  - RASH [None]
  - FAECAL INCONTINENCE [None]
  - HYPERSENSITIVITY [None]
  - THROMBOSIS [None]
  - RENAL FAILURE [None]
  - HYPOPHAGIA [None]
  - SKIN MASS [None]
  - URINARY INCONTINENCE [None]
  - CHEMICAL INJURY [None]
  - CEREBRAL THROMBOSIS [None]
  - BRAIN NEOPLASM [None]
  - CERVICAL NEURITIS [None]
  - NECK MASS [None]
  - HEART RATE INCREASED [None]
  - OEDEMA PERIPHERAL [None]
  - GASTROINTESTINAL SOUNDS ABNORMAL [None]
  - VOMITING [None]
  - HYPERTENSION [None]
  - THINKING ABNORMAL [None]
  - MIGRAINE [None]
  - HEART RATE DECREASED [None]
  - LIVER DISORDER [None]
  - CEREBROVASCULAR ACCIDENT [None]
  - HEMIPLEGIA [None]
  - CERVICAL VERTEBRAL FRACTURE [None]
  - SPINAL CORD PARALYSIS [None]
  - KIDNEY INFECTION [None]
  - STAPHYLOCOCCAL INFECTION [None]
  - STAPHYLOCOCCAL BACTERAEMIA [None]
  - MOVEMENT DISORDER [None]
  - SPINAL DISORDER [None]
  - NAUSEA [None]
  - CALCIUM METABOLISM DISORDER [None]
  - SENSORY LOSS [None]
  - DRUG DOSE OMISSION [None]
  - INTESTINAL OBSTRUCTION [None]
  - ASTHENIA [None]
  - WOUND [None]
  - ANGIOPATHY [None]
